FAERS Safety Report 8139653-3 (Version None)
Quarter: 2012Q1

REPORT INFORMATION
  Report Type: 
  Country: None (occurrence: None)
  Receive Date: 20120215
  Receipt Date: 20120210
  Transmission Date: 20120608
  Serious: Yes (Death, Hospitalization, Other)
  Sender: FDA-Public Use
  Company Number: US-PFIZER INC-2011305502

PATIENT
  Sex: Male

DRUGS (1)
  1. CHANTIX [Suspect]
     Indication: SMOKING CESSATION THERAPY
     Dosage: 0.5MG/1MG
     Dates: start: 20070301, end: 20100301

REACTIONS (8)
  - ANXIETY [None]
  - AGGRESSION [None]
  - ABNORMAL BEHAVIOUR [None]
  - IRRITABILITY [None]
  - COMPLETED SUICIDE [None]
  - DEPRESSION [None]
  - ANGER [None]
  - AGITATION [None]
